FAERS Safety Report 5863392-2 (Version None)
Quarter: 2008Q3

REPORT INFORMATION
  Report Type: 
  Country: None (occurrence: None)
  Receive Date: 20080828
  Receipt Date: 20080821
  Transmission Date: 20090109
  Serious: Yes (Hospitalization, Other)
  Sender: FDA-Public Use
  Company Number: PHHY2008CN18770

PATIENT
  Age: 83 Year
  Sex: Female

DRUGS (5)
  1. DIOVAN [Suspect]
     Indication: HYPERTENSION
     Dosage: 80 MG, QD
     Route: 048
     Dates: start: 20080814, end: 20080819
  2. DIOVAN [Suspect]
     Dosage: 80 MG, BID
     Route: 048
     Dates: start: 20080819
  3. NORVASC [Concomitant]
     Dosage: 10 MG, QD
     Route: 048
  4. OMEPRAZOLE [Concomitant]
     Dosage: 20 MG, QD
  5. NOVOLIN [Concomitant]
     Dosage: UNK

REACTIONS (4)
  - BRADYCARDIA [None]
  - CARDIAC PACEMAKER INSERTION [None]
  - HYPOKALAEMIA [None]
  - NODAL RHYTHM [None]
